FAERS Safety Report 7339734-8 (Version None)
Quarter: 2011Q1

REPORT INFORMATION
  Report Type: 
  Country: None (occurrence: None)
  Receive Date: 20110303
  Receipt Date: 20110303
  Transmission Date: 20110831
  Serious: Yes (Other)
  Sender: FDA-Public Use
  Company Number: None

PATIENT
  Age: 68 Year
  Sex: Male
  Weight: 72.5755 kg

DRUGS (1)
  1. HUMULIN KWIK PEN LILLY [Suspect]
     Indication: TYPE 2 DIABETES MELLITUS
     Dosage: 4 TO 15 UNITS 3 TID CUTANEOUS
     Route: 003
     Dates: start: 20110201, end: 20110301

REACTIONS (1)
  - DIABETES MELLITUS INADEQUATE CONTROL [None]
